FAERS Safety Report 17461475 (Version 1)
Quarter: 2020Q1

REPORT INFORMATION
  Report Type: Spontaneous
  Country: GB (occurrence: US)
  Receive Date: 20200226
  Receipt Date: 20200226
  Transmission Date: 20200409
  Serious: No
  Sender: FDA-Public Use
  Company Number: GB-FERRINGPH-2019FE03463

PATIENT
  Sex: Female

DRUGS (1)
  1. STIMATE [Suspect]
     Active Substance: DESMOPRESSIN ACETATE
     Indication: VON WILLEBRAND^S DISEASE
     Dosage: 300 ?G, MONTHLY
     Route: 045
     Dates: start: 20190325

REACTIONS (1)
  - Drug ineffective [Unknown]
